FAERS Safety Report 10185979 (Version 1)
Quarter: 2014Q2

REPORT INFORMATION
  Report Type: Spontaneous
  Country: EC (occurrence: EC)
  Receive Date: 20140521
  Receipt Date: 20140521
  Transmission Date: 20141212
  Serious: Yes (Other)
  Sender: FDA-Public Use
  Company Number: EC-PFIZER INC-2014134896

PATIENT
  Age: 15 Year
  Sex: Male

DRUGS (1)
  1. EPAMIN [Suspect]

REACTIONS (1)
  - Convulsion [Unknown]
